FAERS Safety Report 20067063 (Version 2)
Quarter: 2021Q4

REPORT INFORMATION
  Report Type: Other
  Country: US (occurrence: None)
  Receive Date: 20211115
  Receipt Date: 20211126
  Transmission Date: 20220303
  Serious: Yes (Death)
  Sender: FDA-Public Use
  Company Number: US-ROCHE-2956495

PATIENT
  Sex: Female

DRUGS (2)
  1. KADCYLA [Suspect]
     Active Substance: ADO-TRASTUZUMAB EMTANSINE
     Indication: Breast cancer female
     Dosage: INFUSE 220MG INTRAVENOUSLY EVERY 21 DAYS, FORM OF ADMIN?160 MG
     Route: 042
  2. KADCYLA [Suspect]
     Active Substance: ADO-TRASTUZUMAB EMTANSINE
     Dosage: INFUSE 220MG INTRAVENOUSLY EVERY 21 DAYS?FORM OF ADMIN 100MG
     Route: 065

REACTIONS (1)
  - Death [Fatal]
